FAERS Safety Report 9066594 (Version 1)
Quarter: 2013Q1

REPORT INFORMATION
  Report Type: Report from Study
  Country: US (occurrence: US)
  Receive Date: 20130131
  Receipt Date: 20130131
  Transmission Date: 20140127
  Serious: No
  Sender: FDA-Public Use
  Company Number: US-ABBOTT-12P-163-1015870-00

PATIENT
  Age: 74 Year
  Sex: Female

DRUGS (12)
  1. HUMIRA [Suspect]
     Indication: PSORIASIS
     Dates: start: 201010, end: 201203
  2. PAXIL [Concomitant]
     Indication: FIBROMYALGIA
     Dosage: 20MG DAILY
  3. LOSARTAN [Concomitant]
     Indication: HYPERTENSION
     Dosage: 10MG DAILY
  4. ASA [Concomitant]
     Indication: PRODUCT USED FOR UNKNOWN INDICATION
  5. SIMVASTATIN [Concomitant]
     Indication: BLOOD CHOLESTEROL INCREASED
     Dosage: 40MG DAILY
  6. METFORMIN [Concomitant]
     Indication: DIABETES MELLITUS
  7. NORTRIPTYLINE [Concomitant]
     Indication: PAIN
     Dosage: AT BEDTIME
  8. NORTRIPTYLINE [Concomitant]
     Indication: INSOMNIA
  9. OMEGA 3 [Concomitant]
     Indication: PRODUCT USED FOR UNKNOWN INDICATION
  10. MULTIVITAMIN [Concomitant]
     Indication: PRODUCT USED FOR UNKNOWN INDICATION
     Dosage: DAILY
  11. CALCIUM [Concomitant]
     Indication: PRODUCT USED FOR UNKNOWN INDICATION
  12. METHOTREXATE [Concomitant]
     Indication: PRODUCT USED FOR UNKNOWN INDICATION

REACTIONS (1)
  - Rash [Recovered/Resolved]
